FAERS Safety Report 8470544-4 (Version None)
Quarter: 2012Q2

REPORT INFORMATION
  Report Type: 
  Country: None (occurrence: None)
  Receive Date: 20120627
  Receipt Date: 20120619
  Transmission Date: 20120825
  Serious: Yes (Disabling, Other)
  Sender: FDA-Public Use
  Company Number: PHHY2012JP054561

PATIENT
  Sex: Female

DRUGS (13)
  1. RED BLOOD CELLS, LEUCOCYTE DEPLETED [Concomitant]
     Dosage: 2 U, EVERY 2 WEEKS
     Dates: start: 20110216, end: 20110719
  2. RED BLOOD CELLS, LEUCOCYTE DEPLETED [Concomitant]
     Dosage: 2 U, EVERY 2 WEEKS
     Dates: start: 20110727, end: 20110803
  3. RED BLOOD CELLS, LEUCOCYTE DEPLETED [Concomitant]
     Dosage: 2 U, EVERY 2 WEEKS
     Dates: start: 20110812, end: 20111101
  4. RED BLOOD CELLS, LEUCOCYTE DEPLETED [Concomitant]
     Dosage: 2 U, EVERY 2 WEEKS
     Dates: start: 20111228, end: 20120202
  5. EXJADE [Suspect]
     Dosage: 750 MG, DAILY
     Route: 048
     Dates: start: 20111116, end: 20111129
  6. FAMOTIDINE [Concomitant]
     Dosage: 10 MG, UNK
     Route: 048
     Dates: start: 20110202
  7. RED BLOOD CELLS, LEUCOCYTE DEPLETED [Concomitant]
     Dosage: 2 U, EVERY 2 WEEKS
     Dates: start: 20111214, end: 20111227
  8. EXJADE [Suspect]
     Indication: IRON OVERLOAD
     Dosage: 500 MG, DAILY
     Route: 048
     Dates: start: 20110202, end: 20111115
  9. ADALAT CC [Concomitant]
     Dosage: 20 MG, UNK
     Route: 048
     Dates: start: 20110202
  10. RED BLOOD CELLS, LEUCOCYTE DEPLETED [Concomitant]
     Dosage: 4 U, EVERY 2 WEEKS
     Dates: start: 20111102, end: 20111213
  11. HICEE [Concomitant]
     Dosage: 3 DF, UNK
     Route: 048
     Dates: start: 20110202
  12. RED BLOOD CELLS, LEUCOCYTE DEPLETED [Concomitant]
     Dosage: 4 U, UNK
     Dates: start: 20110720
  13. EXJADE [Suspect]
     Dosage: 1000 MG, DAILY
     Route: 048
     Dates: start: 20111130, end: 20111214

REACTIONS (7)
  - HEPATIC FUNCTION ABNORMAL [None]
  - CHOLECYSTITIS [None]
  - FALL [None]
  - CONTUSION [None]
  - BLOOD UREA INCREASED [None]
  - SUBDURAL HAEMATOMA [None]
  - HAEMORRHAGE SUBCUTANEOUS [None]
